FAERS Safety Report 23338879 (Version 1)
Quarter: 2023Q4

REPORT INFORMATION
  Report Type: Spontaneous
  Country: US (occurrence: None)
  Receive Date: 20231225
  Receipt Date: 20231225
  Transmission Date: 20240109
  Serious: Yes (Hospitalization)
  Sender: FDA-Public Use
  Company Number: None

PATIENT
  Age: 22 Year
  Sex: Female
  Weight: 81 kg

DRUGS (3)
  1. WEGOVY [Suspect]
     Active Substance: SEMAGLUTIDE
     Indication: Obesity
     Dosage: 4 INJECTIONS AT BEDTIME SUBCUTANEOUS
     Route: 058
     Dates: start: 20231216, end: 20231216
  2. ABILIFY [Concomitant]
     Active Substance: ARIPIPRAZOLE
  3. Protonics [Concomitant]

REACTIONS (7)
  - Malaise [None]
  - Vomiting [None]
  - Pain [None]
  - Nausea [None]
  - Myofascial pain syndrome [None]
  - Gastrointestinal disorder [None]
  - Dyspepsia [None]

NARRATIVE: CASE EVENT DATE: 20231218
